FAERS Safety Report 9464579 (Version 3)
Quarter: 2013Q4

REPORT INFORMATION
  Report Type: Report from Study
  Country: CA (occurrence: CA)
  Receive Date: 20130819
  Receipt Date: 20131004
  Transmission Date: 20140711
  Serious: Yes (Hospitalization, Disabling)
  Sender: FDA-Public Use
  Company Number: CA-UCBSA-095122

PATIENT
  Age: 51 Year
  Sex: Female
  Weight: 66.7 kg

DRUGS (8)
  1. CIMZIA [Suspect]
     Indication: RHEUMATOID ARTHRITIS
     Route: 058
     Dates: start: 20130523, end: 20130620
  2. CIMZIA [Suspect]
     Indication: RHEUMATOID ARTHRITIS
     Route: 058
     Dates: start: 20130704, end: 20130805
  3. PLAQUENIL [Concomitant]
     Indication: RHEUMATOID ARTHRITIS
     Route: 048
     Dates: start: 2005
  4. CELEBREX [Concomitant]
     Indication: RHEUMATOID ARTHRITIS
     Route: 048
     Dates: start: 20070228
  5. METHOTREXATE [Concomitant]
     Indication: RHEUMATOID ARTHRITIS
     Dosage: EVERY BED TIME
     Route: 058
     Dates: start: 2005
  6. EFFEXOR- XR [Concomitant]
     Indication: PAIN
     Route: 048
     Dates: start: 20080416
  7. NOVO-GESIC FORTE [Concomitant]
     Indication: PAIN
     Dosage: 500 MG EVERY 6 HOURS AS REQUIRED
     Route: 048
     Dates: start: 20080704
  8. SYMBICORT [Concomitant]
     Indication: ASTHMA
     Route: 055
     Dates: start: 2010

REACTIONS (3)
  - Myalgia [Recovered/Resolved]
  - Back pain [Recovered/Resolved]
  - Pain [Recovered/Resolved]
